FAERS Safety Report 19952961 (Version 1)
Quarter: 2021Q4

REPORT INFORMATION
  Report Type: Spontaneous
  Country: US (occurrence: US)
  Receive Date: 20211014
  Receipt Date: 20211014
  Transmission Date: 20220303
  Serious: Yes (Hospitalization, Other)
  Sender: FDA-Public Use
  Company Number: US-MEDAC-2021001804

PATIENT
  Age: 73 Year
  Sex: Female

DRUGS (2)
  1. METHOTREXATE [Suspect]
     Active Substance: METHOTREXATE
     Indication: Rheumatoid arthritis
     Route: 065
  2. METHOTREXATE [Suspect]
     Active Substance: METHOTREXATE
     Route: 065

REACTIONS (6)
  - Pruritus [Recovered/Resolved]
  - Anaemia [Unknown]
  - Pancytopenia [Unknown]
  - Mouth ulceration [Recovered/Resolved]
  - Skin ulcer [Recovered/Resolved]
  - Toxicity to various agents [Unknown]
